FAERS Safety Report 20524202 (Version 3)
Quarter: 2022Q1

REPORT INFORMATION
  Report Type: Spontaneous
  Country: US (occurrence: US)
  Receive Date: 20220228
  Receipt Date: 20220317
  Transmission Date: 20220423
  Serious: Yes (Death)
  Sender: FDA-Public Use
  Company Number: US-BAUSCH-BL-2022-005368

PATIENT
  Age: 66 Year
  Sex: Male
  Weight: 90.800 kg

DRUGS (1)
  1. XIFAXAN [Suspect]
     Active Substance: RIFAXIMIN
     Indication: Hepatic cirrhosis
     Dosage: START DATE -BACK IN THE END OF 2017
     Route: 065
     Dates: start: 2017

REACTIONS (2)
  - Hepatic failure [Fatal]
  - Cardiac valve disease [Fatal]

NARRATIVE: CASE EVENT DATE: 20171101
